FAERS Safety Report 16190135 (Version 2)
Quarter: 2019Q2

REPORT INFORMATION
  Report Type: Spontaneous
  Country: FR (occurrence: FR)
  Receive Date: 20190412
  Receipt Date: 20190425
  Transmission Date: 20190711
  Serious: Yes (Hospitalization, Other)
  Sender: FDA-Public Use
  Company Number: FR-PFIZER INC-2019152404

PATIENT
  Sex: Female
  Weight: 50 kg

DRUGS (11)
  1. TAZOCILLINE [Suspect]
     Active Substance: PIPERACILLIN SODIUM\TAZOBACTAM SODIUM
  2. ATARAX [Suspect]
     Active Substance: HYDROXYZINE HYDROCHLORIDE
     Dates: start: 20150220, end: 20150226
  3. VESANOID [Suspect]
     Active Substance: TRETINOIN
     Dosage: 3 DF 1X/DAY (FOR 15 DAYS EVERY 3 MONTHS)
     Route: 048
     Dates: start: 20150622
  4. IDARUBICIN HCL [Suspect]
     Active Substance: IDARUBICIN HYDROCHLORIDE
     Dates: start: 20150119
  5. CANCIDAS [Suspect]
     Active Substance: CASPOFUNGIN ACETATE
  6. IMIPENEM [Suspect]
     Active Substance: IMIPENEM
  7. ALPRAZOLAM. [Concomitant]
     Active Substance: ALPRAZOLAM
  8. DEXAMETHASONE. [Concomitant]
     Active Substance: DEXAMETHASONE
     Indication: DIFFERENTIATION SYNDROME
  9. ARACYTINE [Suspect]
     Active Substance: CYTARABINE
     Dates: start: 20150119
  10. LUTENYL [Suspect]
     Active Substance: NOMEGESTROL ACETATE
     Dates: start: 20150220, end: 20150226
  11. VESANOID [Suspect]
     Active Substance: TRETINOIN
     Indication: ACUTE MYELOID LEUKAEMIA
     Dosage: 40 MG, 2X/DAY
     Route: 048
     Dates: start: 20150114, end: 20150217

REACTIONS (7)
  - Aplasia [Not Recovered/Not Resolved]
  - Differentiation syndrome [Recovered/Resolved]
  - Rash [Not Recovered/Not Resolved]
  - Colitis [Recovered/Resolved]
  - Erythema [Not Recovered/Not Resolved]
  - Acute sinusitis [Recovered/Resolved]
  - Toxic skin eruption [Not Recovered/Not Resolved]

NARRATIVE: CASE EVENT DATE: 201501
